FAERS Safety Report 24349569 (Version 1)
Quarter: 2024Q3

REPORT INFORMATION
  Report Type: Spontaneous
  Country: CA (occurrence: CA)
  Receive Date: 20240923
  Receipt Date: 20240923
  Transmission Date: 20241017
  Serious: Yes (Other)
  Sender: ROCHE
  Company Number: CA-ROCHE-3367198

PATIENT
  Age: 69 Year
  Sex: Female

DRUGS (2)
  1. RITUXIMAB [Suspect]
     Active Substance: RITUXIMAB
     Indication: Rheumatoid arthritis
     Route: 042
  2. PREDNISONE ACETATE [Concomitant]
     Active Substance: PREDNISONE ACETATE

REACTIONS (2)
  - Pneumonia [Unknown]
  - COVID-19 [Unknown]
